FAERS Safety Report 7302916-5 (Version None)
Quarter: 2011Q1

REPORT INFORMATION
  Report Type: 
  Country: None (occurrence: None)
  Receive Date: 20110218
  Receipt Date: 20110211
  Transmission Date: 20110831
  Serious: Yes (Death)
  Sender: FDA-Public Use
  Company Number: US-GILEAD-2011-0036047

PATIENT
  Sex: Female

DRUGS (2)
  1. REVATIO [Concomitant]
  2. LETAIRIS [Suspect]
     Indication: PULMONARY HYPERTENSION
     Route: 048
     Dates: start: 20110113, end: 20110115

REACTIONS (1)
  - PULMONARY HYPERTENSION [None]
